FAERS Safety Report 9161959 (Version 2)
Quarter: 2013Q2

REPORT INFORMATION
  Report Type: Spontaneous
  Country: DE (occurrence: DE)
  Receive Date: 20130314
  Receipt Date: 20130506
  Transmission Date: 20140414
  Serious: No
  Sender: FDA-Public Use
  Company Number: DE-MERCK-1303DEU005916

PATIENT
  Age: 52 Year
  Sex: Female

DRUGS (8)
  1. SYCREST [Suspect]
     Indication: BIPOLAR DISORDER
     Dosage: 15 MG, QD
     Route: 048
     Dates: start: 20130212, end: 20130305
  2. ERGENYL CHRONO [Concomitant]
     Indication: BIPOLAR DISORDER
     Dosage: 1400 MG, QD
     Route: 048
  3. SEROQUEL [Concomitant]
     Indication: BIPOLAR DISORDER
     Dosage: 600 MG, QD
     Route: 048
  4. ABILIFY [Concomitant]
     Indication: BIPOLAR DISORDER
     Dosage: 10 MG, QD
     Route: 048
  5. LAMOTRIGINE [Concomitant]
     Indication: BIPOLAR DISORDER
     Dosage: 300 MG, QD
     Route: 048
  6. L-THYROXIN [Concomitant]
     Dosage: 50 MICROGRAM, QD
     Route: 048
  7. LISINOPRIL [Concomitant]
     Dosage: 5 MG, QD
     Route: 048
  8. BIFITERAL [Concomitant]
     Dosage: 1 DF, QD
     Route: 048

REACTIONS (4)
  - Gingivitis [Recovered/Resolved]
  - Glossitis [Recovered/Resolved]
  - Hypersensitivity [Recovered/Resolved]
  - Aphthous stomatitis [Recovered/Resolved]
